FAERS Safety Report 20650241 (Version 1)
Quarter: 2022Q1

REPORT INFORMATION
  Report Type: Spontaneous
  Country: US (occurrence: US)
  Receive Date: 20220329
  Receipt Date: 20220329
  Transmission Date: 20220423
  Serious: No
  Sender: FDA-Public Use
  Company Number: US-SANOFI-01023857

PATIENT
  Age: 84 Year
  Sex: Female

DRUGS (3)
  1. LANTUS SOLOSTAR [Suspect]
     Active Substance: INSULIN GLARGINE
     Indication: Diabetes mellitus
     Dosage: DRUG STRUCTURE DOSAGE : 5 UNITS AM/ 6 UNITS PM DRUG INTERVAL DOSAGE : ONCE DAILY DRUG TREATMENT DURA
  2. HUMALOG [Concomitant]
     Active Substance: INSULIN LISPRO
     Dosage: UNK
  3. HUMALOG [Concomitant]
     Active Substance: INSULIN LISPRO
     Dosage: UNK, TID

REACTIONS (5)
  - Weight decreased [Unknown]
  - Hypoglycaemia [Unknown]
  - Visual impairment [Unknown]
  - Unevaluable event [Unknown]
  - Product use issue [Unknown]
